FAERS Safety Report 10008787 (Version 1)
Quarter: 2014Q1

REPORT INFORMATION
  Report Type: Spontaneous
  Country: US (occurrence: US)
  Receive Date: 20140312
  Receipt Date: 20140312
  Transmission Date: 20141002
  Serious: No
  Sender: FDA-Public Use
  Company Number: US-INCYTE CORPORATION-2012IN000530

PATIENT
  Age: 78 Year
  Sex: Male

DRUGS (11)
  1. JAKAFI [Suspect]
     Indication: MYELOFIBROSIS
     Dosage: 10 MG, BID
     Route: 048
  2. HYDREA [Concomitant]
  3. PREVACID [Concomitant]
  4. RAMIPRIL [Concomitant]
  5. DOXAZOSIN [Concomitant]
  6. SYNTHROID [Concomitant]
  7. AMITRIPTYLINE [Concomitant]
  8. FOLIC ACID [Concomitant]
  9. ZYLOPRIM [Concomitant]
  10. OXYCONTIN [Concomitant]
  11. METHOCARBAMOL [Concomitant]

REACTIONS (1)
  - Accidental overdose [Recovered/Resolved]
